FAERS Safety Report 21955478 (Version 1)
Quarter: 2023Q1

REPORT INFORMATION
  Report Type: Spontaneous
  Country: US (occurrence: US)
  Receive Date: 20230206
  Receipt Date: 20230206
  Transmission Date: 20230417
  Serious: No
  Sender: FDA-Public Use
  Company Number: US-SA-SAC20230201001400

PATIENT
  Sex: Female

DRUGS (1)
  1. DUPIXENT [Suspect]
     Active Substance: DUPILUMAB
     Indication: Eczema
     Dosage: 300 MG;OTHER
     Route: 058
     Dates: start: 202211

REACTIONS (4)
  - Skin fissures [Not Recovered/Not Resolved]
  - Skin haemorrhage [Unknown]
  - Dry skin [Not Recovered/Not Resolved]
  - Therapeutic response decreased [Not Recovered/Not Resolved]
